FAERS Safety Report 5736946-1 (Version None)
Quarter: 2008Q2

REPORT INFORMATION
  Report Type: 
  Country: None (occurrence: None)
  Receive Date: 20080509
  Receipt Date: 20080423
  Transmission Date: 20081010
  Serious: Yes (Death, Other)
  Sender: FDA-Public Use
  Company Number: 2008US000615

PATIENT
  Age: 38 Year
  Sex: Male

DRUGS (16)
  1. AMBISOME [Suspect]
     Indication: SYSTEMIC CANDIDA
     Dosage: 2SEE IMAGE
     Route: 042
     Dates: start: 20071025, end: 20071025
  2. AMBISOME [Suspect]
     Indication: SYSTEMIC CANDIDA
     Dosage: 2SEE IMAGE
     Route: 042
     Dates: start: 20071026, end: 20071029
  3. AMBISOME [Suspect]
     Indication: SYSTEMIC CANDIDA
     Dosage: 2SEE IMAGE
     Route: 042
     Dates: start: 20071030, end: 20071031
  4. AMBISOME [Suspect]
     Indication: SYSTEMIC CANDIDA
     Dosage: 2SEE IMAGE
     Route: 042
     Dates: start: 20071103, end: 20071104
  5. AMBISOME [Suspect]
     Indication: SYSTEMIC CANDIDA
     Dosage: 2SEE IMAGE
     Route: 042
     Dates: start: 20071105, end: 20071114
  6. FUNGUARD (MICAFUNGIN) [Concomitant]
  7. VANCOMYCIN HYDROCHLORIDE [Concomitant]
  8. MAXIPIME [Concomitant]
  9. ZOVIRAX [Concomitant]
  10. FLUDARA [Concomitant]
  11. CYCLOPHOSPHAMIDE [Concomitant]
  12. METHOTREXATE [Concomitant]
  13. PROGRAF [Concomitant]
  14. TIENAM (IMIPENEM, CILASTATIN SODIUM) [Concomitant]
  15. PLATELETS [Concomitant]
  16. RED BLOOD CELLS [Concomitant]

REACTIONS (4)
  - CONDITION AGGRAVATED [None]
  - RENAL DISORDER [None]
  - STEM CELL TRANSPLANT [None]
  - SYSTEMIC CANDIDA [None]
